FAERS Safety Report 5412820-5 (Version None)
Quarter: 2007Q3

REPORT INFORMATION
  Report Type: 
  Country: None (occurrence: None)
  Receive Date: 20070713
  Receipt Date: 20070510
  Transmission Date: 20080115
  Serious: No
  Sender: FDA-Public Use
  Company Number: 2007SP001744

PATIENT
  Age: 45 Year
  Sex: Male
  Weight: 79.3795 kg

DRUGS (4)
  1. LUNESTA [Suspect]
     Indication: SLEEP DISORDER
     Dosage: 3 MG; HS; ORAL
     Route: 048
     Dates: start: 20061024
  2. VYTORIN [Concomitant]
  3. ASPIRIN [Concomitant]
  4. ACIPHEX [Concomitant]

REACTIONS (1)
  - URTICARIA [None]
